FAERS Safety Report 13099398 (Version 1)
Quarter: 2017Q1

REPORT INFORMATION
  Report Type: Spontaneous
  Country: IT (occurrence: IT)
  Receive Date: 20170109
  Receipt Date: 20170109
  Transmission Date: 20170428
  Serious: Yes (Hospitalization)
  Sender: FDA-Public Use
  Company Number: IT-MYLANLABS-2017M1000557

PATIENT

DRUGS (1)
  1. QUETIAPINE. [Suspect]
     Active Substance: QUETIAPINE
     Indication: PRODUCT USED FOR UNKNOWN INDICATION
     Dosage: UNK

REACTIONS (6)
  - Product use issue [Recovering/Resolving]
  - Blood creatine phosphokinase increased [Recovering/Resolving]
  - Confusional state [Recovering/Resolving]
  - Self-medication [Recovering/Resolving]
  - Agitation [Recovering/Resolving]
  - Transaminases increased [Recovering/Resolving]
